FAERS Safety Report 5322611-1 (Version None)
Quarter: 2007Q2

REPORT INFORMATION
  Report Type: 
  Country: None (occurrence: None)
  Receive Date: 20070511
  Receipt Date: 20070430
  Transmission Date: 20071010
  Serious: Yes (Death, Hospitalization)
  Sender: FDA-Public Use
  Company Number: DE-SANOFI-SYNTHELABO-A04200700712

PATIENT
  Sex: Male
  Weight: 63 kg

DRUGS (5)
  1. ZOCOR [Concomitant]
     Indication: DRUG USE FOR UNKNOWN INDICATION
     Route: 048
  2. CONCOR [Concomitant]
     Indication: DRUG USE FOR UNKNOWN INDICATION
     Route: 048
  3. RAMIPRIL [Concomitant]
     Indication: DRUG USE FOR UNKNOWN INDICATION
     Route: 048
  4. ASPIRIN [Concomitant]
     Indication: DRUG USE FOR UNKNOWN INDICATION
     Route: 048
  5. PLAVIX [Suspect]
     Indication: STENT PLACEMENT
     Route: 048
     Dates: end: 20061101

REACTIONS (5)
  - CARDIAC ARREST [None]
  - MYOCARDIAL INFARCTION [None]
  - THROMBOSIS IN DEVICE [None]
  - VENTRICULAR FIBRILLATION [None]
  - VENTRICULAR FLUTTER [None]
